FAERS Safety Report 8680136 (Version 2)
Quarter: 2013Q1

REPORT INFORMATION
  Report Type: Spontaneous
  Country: IT (occurrence: IT)
  Receive Date: 20120724
  Receipt Date: 20130214
  Transmission Date: 20140127
  Serious: Yes (Hospitalization)
  Sender: FDA-Public Use
  Company Number: IT-ROCHE-1088698

PATIENT
  Age: 53 Year
  Sex: Male

DRUGS (2)
  1. NAPROSYN [Suspect]
     Indication: ARTHRITIS
     Dosage: PERMANENTLY DISCONTINUED
     Route: 048
     Dates: start: 20120521, end: 20120521
  2. PRITOR PLUS [Concomitant]
     Indication: HYPERTENSION
     Dosage: 40/12.5 MG
     Route: 065

REACTIONS (6)
  - Depressed level of consciousness [Recovered/Resolved]
  - Tinnitus [Recovered/Resolved]
  - Melaena [Recovered/Resolved]
  - Palpitations [Recovered/Resolved]
  - Duodenal ulcer haemorrhage [Recovered/Resolved]
  - Haemorrhagic anaemia [Recovered/Resolved]
